FAERS Safety Report 20132112 (Version 5)
Quarter: 2022Q2

REPORT INFORMATION
  Report Type: Spontaneous
  Country: MT (occurrence: MT)
  Receive Date: 20211130
  Receipt Date: 20220527
  Transmission Date: 20220720
  Serious: Yes (Other)
  Sender: FDA-Public Use
  Company Number: MT-002147023-NVSC2021MT234407

PATIENT
  Age: 58 Year
  Sex: Male

DRUGS (4)
  1. ADALIMUMAB [Suspect]
     Active Substance: ADALIMUMAB
     Indication: Hidradenitis
     Dosage: 40 MILLIGRAM, QW
     Route: 065
  2. ADALIMUMAB [Suspect]
     Active Substance: ADALIMUMAB
     Indication: Hidradenitis
     Dosage: 40 MG, WEEKLY
  3. MINOCYCLINE [Suspect]
     Active Substance: MINOCYCLINE HYDROCHLORIDE
     Indication: Cutaneous leishmaniasis
     Dosage: 100 MILLIGRAM, BID (200 MILLIGRAM QD/100 MG, BID
     Route: 065
  4. MINOCYCLINE [Concomitant]
     Active Substance: MINOCYCLINE HYDROCHLORIDE
     Indication: Product used for unknown indication
     Dosage: 200 MILLIGRAM, QD, 100 MG, BID
     Route: 065

REACTIONS (4)
  - Pyoderma gangrenosum [Recovered/Resolved]
  - Cutaneous leishmaniasis [Recovered/Resolved]
  - Immunosuppression [Recovered/Resolved]
  - Drug ineffective [Unknown]
